FAERS Safety Report 4679511-X (Version None)
Quarter: 2005Q2

REPORT INFORMATION
  Report Type: 
  Country: None (occurrence: None)
  Receive Date: 20050531
  Receipt Date: 20050523
  Transmission Date: 20051028
  Serious: Yes (Life-Threatening, Hospitalization)
  Sender: FDA-Public Use
  Company Number: 2005-128412-NL

PATIENT
  Age: 37 Year
  Sex: Female

DRUGS (4)
  1. MENOTROPINS [Suspect]
  2. CHORIONIC GONADOTROPIN [Suspect]
     Dosage: 10000 IU ONCE
  3. BUSERELIN ACETATE [Suspect]
     Dosage: 900 UG
  4. DYDROGESTERONE TAB [Concomitant]

REACTIONS (6)
  - ANAEMIA [None]
  - DRUG EXPOSURE DURING PREGNANCY [None]
  - ECTOPIC PREGNANCY [None]
  - GENITAL HAEMORRHAGE [None]
  - INTRA-ABDOMINAL HAEMORRHAGE [None]
  - SPLENIC HAEMATOMA [None]
